FAERS Safety Report 16074025 (Version 1)
Quarter: 2019Q1

REPORT INFORMATION
  Report Type: Spontaneous
  Country: US (occurrence: US)
  Receive Date: 20190314
  Receipt Date: 20190314
  Transmission Date: 20190418
  Serious: No
  Sender: FDA-Public Use
  Company Number: US-BAYER-2019-049824

PATIENT
  Sex: Female

DRUGS (2)
  1. MIRALAX [Suspect]
     Active Substance: POLYETHYLENE GLYCOL 3350
     Dosage: TASTED A SMALL AMOUNT
     Route: 048
     Dates: start: 20181120
  2. MIRALAX [Suspect]
     Active Substance: POLYETHYLENE GLYCOL 3350
     Dosage: TASTED A SMALL AMOUNT
     Route: 048
     Dates: start: 20190310

REACTIONS (6)
  - Underdose [Unknown]
  - Dysgeusia [None]
  - Poor quality product administered [None]
  - Dysgeusia [Unknown]
  - Dysgeusia [Unknown]
  - Product quality issue [None]

NARRATIVE: CASE EVENT DATE: 20181120
